FAERS Safety Report 17349542 (Version 3)
Quarter: 2020Q1

REPORT INFORMATION
  Report Type: Spontaneous
  Country: US (occurrence: US)
  Receive Date: 20200130
  Receipt Date: 20200318
  Transmission Date: 20200409
  Serious: No
  Sender: FDA-Public Use
  Company Number: US-SA-2020SA019145

PATIENT
  Age: 15 Year
  Sex: Female

DRUGS (1)
  1. DUPIXENT [Suspect]
     Active Substance: DUPILUMAB
     Indication: PRODUCT USED FOR UNKNOWN INDICATION
     Dosage: 300 MG/2ML, QOW
     Route: 058
     Dates: start: 201912

REACTIONS (9)
  - Dry skin [Unknown]
  - Swelling [Unknown]
  - Skin exfoliation [Unknown]
  - Eye inflammation [Unknown]
  - Rash [Recovered/Resolved]
  - Pruritus [Unknown]
  - Hypersensitivity [Unknown]
  - Blepharitis [Unknown]
  - Erythema [Unknown]
